FAERS Safety Report 25223536 (Version 1)
Quarter: 2025Q2

REPORT INFORMATION
  Report Type: Report from Study
  Country: RU (occurrence: RU)
  Receive Date: 20250422
  Receipt Date: 20250422
  Transmission Date: 20250716
  Serious: Yes (Death)
  Sender: ROCHE
  Company Number: RU-ROCHE-10000260355

PATIENT

DRUGS (33)
  1. RITUXIMAB [Suspect]
     Active Substance: RITUXIMAB
     Indication: Hodgkin^s disease
     Route: 065
  2. RITUXIMAB [Suspect]
     Active Substance: RITUXIMAB
     Indication: Non-Hodgkin^s lymphoma
  3. RITUXIMAB [Suspect]
     Active Substance: RITUXIMAB
     Indication: Prophylaxis against transplant rejection
  4. BRENTUXIMAB VEDOTIN [Suspect]
     Active Substance: BRENTUXIMAB VEDOTIN
     Indication: Hodgkin^s disease
     Route: 065
  5. BRENTUXIMAB VEDOTIN [Suspect]
     Active Substance: BRENTUXIMAB VEDOTIN
     Indication: Non-Hodgkin^s lymphoma
  6. BRENTUXIMAB VEDOTIN [Suspect]
     Active Substance: BRENTUXIMAB VEDOTIN
     Indication: Prophylaxis against transplant rejection
  7. IFOSFAMIDE [Suspect]
     Active Substance: IFOSFAMIDE
     Indication: Hodgkin^s disease
     Route: 065
  8. IFOSFAMIDE [Suspect]
     Active Substance: IFOSFAMIDE
     Indication: Non-Hodgkin^s lymphoma
  9. IFOSFAMIDE [Suspect]
     Active Substance: IFOSFAMIDE
     Indication: Prophylaxis against transplant rejection
  10. CARBOPLATIN [Suspect]
     Active Substance: CARBOPLATIN
     Indication: Hodgkin^s disease
     Route: 065
  11. CARBOPLATIN [Suspect]
     Active Substance: CARBOPLATIN
     Indication: Non-Hodgkin^s lymphoma
  12. CARBOPLATIN [Suspect]
     Active Substance: CARBOPLATIN
     Indication: Prophylaxis against transplant rejection
  13. ETOPOSIDE [Suspect]
     Active Substance: ETOPOSIDE
     Indication: Hodgkin^s disease
     Route: 065
  14. ETOPOSIDE [Suspect]
     Active Substance: ETOPOSIDE
     Indication: Non-Hodgkin^s lymphoma
  15. ETOPOSIDE [Suspect]
     Active Substance: ETOPOSIDE
     Indication: Prophylaxis against transplant rejection
  16. DEXAMETHASONE [Suspect]
     Active Substance: DEXAMETHASONE
     Indication: Hodgkin^s disease
     Route: 065
  17. DEXAMETHASONE [Suspect]
     Active Substance: DEXAMETHASONE
     Indication: Non-Hodgkin^s lymphoma
  18. DEXAMETHASONE [Suspect]
     Active Substance: DEXAMETHASONE
     Indication: Prophylaxis against transplant rejection
  19. DEXAMETHASONE [Suspect]
     Active Substance: DEXAMETHASONE
     Indication: Hodgkin^s disease
     Dosage: FROM D-5 TO D-2
     Route: 065
  20. DEXAMETHASONE [Suspect]
     Active Substance: DEXAMETHASONE
     Indication: Non-Hodgkin^s lymphoma
  21. DEXAMETHASONE [Suspect]
     Active Substance: DEXAMETHASONE
     Indication: Prophylaxis against transplant rejection
  22. CISPLATIN [Suspect]
     Active Substance: CISPLATIN
     Indication: Hodgkin^s disease
     Route: 065
  23. CISPLATIN [Suspect]
     Active Substance: CISPLATIN
     Indication: Non-Hodgkin^s lymphoma
  24. CISPLATIN [Suspect]
     Active Substance: CISPLATIN
     Indication: Prophylaxis against transplant rejection
  25. CYTARABINE [Suspect]
     Active Substance: CYTARABINE
     Indication: Hodgkin^s disease
     Dosage: FROM D-5 TO D-2,
     Route: 065
  26. CYTARABINE [Suspect]
     Active Substance: CYTARABINE
     Indication: Non-Hodgkin^s lymphoma
  27. CYTARABINE [Suspect]
     Active Substance: CYTARABINE
     Indication: Prophylaxis against transplant rejection
  28. BENDAMUSTINE [Suspect]
     Active Substance: BENDAMUSTINE
     Indication: Hodgkin^s disease
     Dosage: ON D-7 AND D-6
     Route: 065
  29. BENDAMUSTINE [Suspect]
     Active Substance: BENDAMUSTINE
     Indication: Non-Hodgkin^s lymphoma
  30. BENDAMUSTINE [Suspect]
     Active Substance: BENDAMUSTINE
     Indication: Prophylaxis against transplant rejection
  31. MELPHALAN [Suspect]
     Active Substance: MELPHALAN
     Indication: Hodgkin^s disease
     Dosage: ON D-1
     Route: 065
  32. MELPHALAN [Suspect]
     Active Substance: MELPHALAN
     Indication: Non-Hodgkin^s lymphoma
  33. MELPHALAN [Suspect]
     Active Substance: MELPHALAN
     Indication: Prophylaxis against transplant rejection

REACTIONS (3)
  - Sepsis [Fatal]
  - Pulmonary fibrosis [Fatal]
  - Disseminated intravascular coagulation [Fatal]
